FAERS Safety Report 21183001 (Version 2)
Quarter: 2022Q4

REPORT INFORMATION
  Report Type: Report from Study
  Country: US (occurrence: US)
  Receive Date: 20220808
  Receipt Date: 20221005
  Transmission Date: 20230113
  Serious: Yes (Other)
  Sender: FDA-Public Use
  Company Number: US-NOVARTISPH-NVSC2022US177298

PATIENT
  Age: 49 Year
  Sex: Male

DRUGS (1)
  1. ENTRESTO [Suspect]
     Active Substance: SACUBITRIL\VALSARTAN
     Indication: Product used for unknown indication
     Dosage: 1 DOSAGE FORM, BID (STARTED COUPLE OF MONTHS AGO)
     Route: 065

REACTIONS (7)
  - Myocardial infarction [Unknown]
  - Abdominal distension [Unknown]
  - Feeling abnormal [Unknown]
  - Claustrophobia [Unknown]
  - Weight decreased [Unknown]
  - Decreased activity [Unknown]
  - Weight fluctuation [Unknown]

NARRATIVE: CASE EVENT DATE: 20220331
